FAERS Safety Report 9967235 (Version 2)
Quarter: 2016Q1

REPORT INFORMATION
  Report Type: Report from Study
  Country: PR (occurrence: PR)
  Receive Date: 20140305
  Receipt Date: 20160125
  Transmission Date: 20160526
  Serious: No
  Sender: FDA-Public Use
  Company Number: PR-ABBVIE-13P-131-1145578-00

PATIENT
  Age: 66 Year
  Sex: Female
  Weight: 55.84 kg

DRUGS (4)
  1. TUSSIPRESS [Concomitant]
     Indication: COUGH
  2. HUMIRA [Suspect]
     Active Substance: ADALIMUMAB
     Indication: PSORIATIC ARTHROPATHY
     Route: 058
     Dates: start: 2011
  3. OMEPRAZOLE. [Concomitant]
     Active Substance: OMEPRAZOLE
     Indication: DYSPEPSIA
     Route: 048
     Dates: start: 20150202
  4. FORBITUS [Concomitant]
     Indication: COUGH

REACTIONS (4)
  - Nasal abscess [Recovered/Resolved]
  - Nasopharyngitis [Recovered/Resolved]
  - Vaginal abscess [Recovered/Resolved]
  - Subcutaneous abscess [Recovered/Resolved]

NARRATIVE: CASE EVENT DATE: 20130903
